FAERS Safety Report 21761761 (Version 1)
Quarter: 2022Q4

REPORT INFORMATION
  Report Type: Spontaneous
  Country: US (occurrence: US)
  Receive Date: 20221221
  Receipt Date: 20221221
  Transmission Date: 20230112
  Serious: Yes (Death, Hospitalization, Other)
  Sender: FDA-Public Use
  Company Number: US-GILEAD-2022-0610383

PATIENT
  Age: 69 Year
  Sex: Female

DRUGS (1)
  1. TRODELVY [Suspect]
     Active Substance: SACITUZUMAB GOVITECAN-HZIY
     Indication: Diffuse large B-cell lymphoma
     Dosage: UNK
     Route: 065
     Dates: start: 20220823

REACTIONS (7)
  - Disease progression [Fatal]
  - Lymphadenopathy [Unknown]
  - Abdominal pain [Unknown]
  - Failure to thrive [Unknown]
  - Asthenia [Unknown]
  - Diarrhoea [Unknown]
  - Pelvic pain [Unknown]

NARRATIVE: CASE EVENT DATE: 20221001
